FAERS Safety Report 5189228-3 (Version None)
Quarter: 2006Q4

REPORT INFORMATION
  Report Type: 
  Country: None (occurrence: None)
  Receive Date: 20061215
  Receipt Date: 20061206
  Transmission Date: 20070319
  Serious: Yes (Other)
  Sender: FDA-Public Use
  Company Number: 2006112853

PATIENT
  Age: 69 Year
  Sex: Male
  Weight: 110 kg

DRUGS (16)
  1. LYRICA [Suspect]
     Indication: NEUROPATHY PERIPHERAL
     Dosage: 100 MG
     Dates: start: 20060706, end: 20060713
  2. ALL OTHER THERAPEUTIC PRODUCTS (ALL OTHER THERAPEUTIC PRODUCTS) [Concomitant]
  3. HYTRIN [Concomitant]
  4. CLONAZEPAM [Concomitant]
  5. THEOPHYLLINE [Concomitant]
  6. PRILOSEC [Concomitant]
  7. ZOCOR [Concomitant]
  8. ETODOLAC [Concomitant]
  9. LISINOPRIL W/HYDROCHLOROTHIAZIDE (HYDROCHLOROTHIAZIDE, LISINOPRIL) [Concomitant]
  10. PRAMIPEXOLE DIHYDROCHLORIDE (PRAMIPEXOLE DIHYDROCHLORIDE) [Concomitant]
  11. PAXIL [Concomitant]
  12. LORCET-HD [Concomitant]
  13. ADVAIR DISKUS 100/50 [Concomitant]
  14. MULTIVITAMIN [Concomitant]
  15. LIDOCAINE [Concomitant]
  16. ZYRTEC [Concomitant]

REACTIONS (6)
  - ABDOMINAL PAIN LOWER [None]
  - ABDOMINAL PAIN UPPER [None]
  - FLATULENCE [None]
  - MUSCLE SPASMS [None]
  - URINARY RETENTION [None]
  - VOMITING [None]
